FAERS Safety Report 13527685 (Version 3)
Quarter: 2017Q3

REPORT INFORMATION
  Report Type: Spontaneous
  Country: US (occurrence: US)
  Receive Date: 20170509
  Receipt Date: 20170714
  Transmission Date: 20171127
  Serious: No
  Sender: FDA-Public Use
  Company Number: US-GLAXOSMITHKLINE-US2017066797

PATIENT
  Sex: Female

DRUGS (2)
  1. SEREVENT DISKUS [Suspect]
     Active Substance: SALMETEROL XINAFOATE
     Indication: PRODUCT USED FOR UNKNOWN INDICATION
     Dosage: UNK
     Route: 055
     Dates: start: 20170504
  2. SUMATRIPTAN (SUMATRIPTAN SUCCINATE) TABLET [Concomitant]
     Active Substance: SUMATRIPTAN

REACTIONS (3)
  - Circumstance or information capable of leading to medication error [Unknown]
  - Product label confusion [Unknown]
  - Wrong technique in device usage process [Unknown]
